FAERS Safety Report 9946071 (Version 1)
Quarter: 2014Q1

REPORT INFORMATION
  Report Type: Spontaneous
  Country: US (occurrence: US)
  Receive Date: 20140303
  Receipt Date: 20140303
  Transmission Date: 20141002
  Serious: No
  Sender: FDA-Public Use
  Company Number: US-AMGEN-USASP2013077019

PATIENT
  Age: 57 Year
  Sex: Female

DRUGS (5)
  1. ENBREL [Suspect]
     Indication: PRODUCT USED FOR UNKNOWN INDICATION
     Dosage: 50 MG, QWK
     Route: 058
  2. WELLBUTRIN [Concomitant]
     Dosage: 100 MG, UNK
  3. VIIBRYD [Concomitant]
     Dosage: 10 MG, UNK
  4. PREDNISONE [Concomitant]
     Dosage: 2.5 MG, UNK
  5. SIMVASTATIN [Concomitant]
     Dosage: 10 MG, UNK

REACTIONS (2)
  - Oral disorder [Unknown]
  - Rheumatoid arthritis [Unknown]
